FAERS Safety Report 7681108-4 (Version None)
Quarter: 2011Q3

REPORT INFORMATION
  Report Type: 
  Country: None (occurrence: None)
  Receive Date: 20110812
  Receipt Date: 20110809
  Transmission Date: 20111222
  Serious: No
  Sender: FDA-Public Use
  Company Number: US-PFIZER INC-2011143965

PATIENT
  Sex: Female

DRUGS (2)
  1. PREMARIN [Suspect]
     Indication: HORMONE REPLACEMENT THERAPY
     Dosage: 0.625 MG, BEDTIMES TWO DAYS
     Route: 067
     Dates: start: 20110223, end: 20110225
  2. TOPROL-XL [Concomitant]
     Dosage: 50 MG, UNK

REACTIONS (4)
  - DIZZINESS [None]
  - FEELING ABNORMAL [None]
  - PRODUCT PACKAGING ISSUE [None]
  - PRODUCT QUALITY ISSUE [None]
